FAERS Safety Report 7580891 (Version 6)
Quarter: 2017Q1

REPORT INFORMATION
  Report Type: Spontaneous
  Country: CA (occurrence: CA)
  Receive Date: 20100910
  Receipt Date: 20170302
  Transmission Date: 20170429
  Serious: Yes (Other)
  Sender: FDA-Public Use
  Company Number: CA-PFIZER INC-2009153737

PATIENT
  Age: 18 Year
  Sex: Male
  Weight: 39 kg

DRUGS (14)
  1. ZELDOX [Suspect]
     Active Substance: ZIPRASIDONE
     Indication: HALLUCINATION, AUDITORY
     Dosage: 17.5 MG, (12.5MG AT NIGHT 8PM; 2.5MG MORNING; 2.5MG AT 2PM)
     Dates: start: 20090420
  2. ZELDOX [Suspect]
     Active Substance: ZIPRASIDONE
     Dosage: 25MG (10 MG IN THE MORNING, 15 MG AT BEDTIME)
  3. ZELDOX [Suspect]
     Active Substance: ZIPRASIDONE
     Dosage: 30 MG, IN SEPARATE DOSES
  4. BUSPIRONE [Concomitant]
     Active Substance: BUSPIRONE HYDROCHLORIDE
  5. ZELDOX [Suspect]
     Active Substance: ZIPRASIDONE
     Indication: HALLUCINATION
     Dosage: 15 MG (7.5MG AT NIGHT; 5MG MORNING; 2.5MG AT 2PM)
     Dates: start: 20090214, end: 20090419
  6. ZELDOX [Suspect]
     Active Substance: ZIPRASIDONE
     Indication: PSYCHOTIC DISORDER
     Dosage: 7.5 MG, 2X/DAY
     Dates: start: 200808, end: 20090213
  7. ZELDOX [Suspect]
     Active Substance: ZIPRASIDONE
     Dosage: 22.5 MG (5 MG IN THE MORNING, 2.5 MG IN THE AFTERNOON, 15 MG AT NIGHT)
  8. REMERON [Concomitant]
     Active Substance: MIRTAZAPINE
  9. AMOXICILLIN. [Suspect]
     Active Substance: AMOXICILLIN
     Indication: TOOTH INFECTION
     Dosage: UNK
     Dates: start: 20100814, end: 20100825
  10. ZOPICLONE [Concomitant]
     Active Substance: ZOPICLONE
     Dosage: UNK
  11. ZELDOX [Suspect]
     Active Substance: ZIPRASIDONE
     Indication: POST-TRAUMATIC STRESS DISORDER
     Dosage: 17.5 MG IN 24 HOUR CYCLE (2.5MG IN THE MORNING, 2.5 AT 14:00PM, 12.5 AT 20:00PM
  12. ZELDOX [Suspect]
     Active Substance: ZIPRASIDONE
     Dosage: 25 MG (5MG 8AM, 5MG 2PM, 15MG 8PM)
     Dates: start: 20100831
  13. ZELDOX [Suspect]
     Active Substance: ZIPRASIDONE
     Dosage: 10 MG IN THE MORNING, 20 MG AT BEDTIME, 2.5 MG AS NEEDED AT 5PM
  14. ATIVAN [Suspect]
     Active Substance: LORAZEPAM
     Dosage: 0.125 MG (0.5 MG X 1/4)

REACTIONS (24)
  - Staring [Recovered/Resolved]
  - Anxiety [Unknown]
  - Depression [Unknown]
  - Somnolence [Unknown]
  - Unresponsive to stimuli [Unknown]
  - Muscle disorder [Unknown]
  - Insomnia [Not Recovered/Not Resolved]
  - Thinking abnormal [Recovered/Resolved]
  - Fatigue [Recovered/Resolved]
  - Nasopharyngitis [Unknown]
  - Drug effect decreased [Unknown]
  - Fear [Unknown]
  - Lethargy [Unknown]
  - Tension [Unknown]
  - Hallucination [Recovering/Resolving]
  - Oculogyric crisis [Recovered/Resolved]
  - Nuchal rigidity [Unknown]
  - Oculogyric crisis [Recovered/Resolved]
  - Posture abnormal [Unknown]
  - Weight increased [Unknown]
  - Psychotic disorder [Unknown]
  - Posture abnormal [Recovered/Resolved]
  - Sleep apnoea syndrome [Unknown]
  - Tooth infection [Unknown]

NARRATIVE: CASE EVENT DATE: 20081215
